FAERS Safety Report 22586136 (Version 1)
Quarter: 2023Q2

REPORT INFORMATION
  Report Type: Report from Study
  Country: CN (occurrence: CN)
  Receive Date: 20230610
  Receipt Date: 20230610
  Transmission Date: 20230721
  Serious: Yes (Other)
  Sender: FDA-Public Use
  Company Number: CN-SUN PHARMACEUTICAL INDUSTRIES LTD-2023R1-393963

PATIENT
  Sex: Male

DRUGS (3)
  1. ASPIRIN\DIPYRIDAMOLE [Suspect]
     Active Substance: ASPIRIN\DIPYRIDAMOLE
     Indication: Kawasaki^s disease
     Dosage: 3-5 MG/KG.D FOR QD AND 3-5 MG/KG.D, DIVIDED INTO BID
     Route: 048
  2. CLOPIDOGREL [Suspect]
     Active Substance: CLOPIDOGREL BISULFATE
     Indication: Kawasaki^s disease
     Dosage: 1 MG/KG.D FOR QD
     Route: 048
  3. HEPARIN [Suspect]
     Active Substance: HEPARIN SODIUM
     Indication: Kawasaki^s disease
     Dosage: 100U/KG, ONCE 8 H
     Route: 042

REACTIONS (1)
  - Disease recurrence [Unknown]
